FAERS Safety Report 22724556 (Version 8)
Quarter: 2023Q4

REPORT INFORMATION
  Report Type: Report from Study
  Country: AR (occurrence: None)
  Receive Date: 20230719
  Receipt Date: 20231004
  Transmission Date: 20240110
  Serious: Yes (Hospitalization)
  Sender: FDA-Public Use
  Company Number: AR-Eisai Medical Research-EC-2023-144631

PATIENT
  Age: 80 Year
  Sex: Female
  Weight: 70 kg

DRUGS (7)
  1. LENVATINIB [Suspect]
     Active Substance: LENVATINIB
     Indication: Renal cell carcinoma
     Dosage: STARTING DOSE AT 20 MG (FLUCTUATED DOSAGE)
     Route: 048
     Dates: start: 20230417, end: 20230711
  2. LENVATINIB [Suspect]
     Active Substance: LENVATINIB
     Route: 048
     Dates: start: 20230717
  3. BELZUTIFAN [Suspect]
     Active Substance: BELZUTIFAN
     Indication: Renal cell carcinoma
     Route: 048
     Dates: start: 20230417, end: 20230711
  4. BELZUTIFAN [Suspect]
     Active Substance: BELZUTIFAN
     Dosage: 120 MG (FLUCTUATED DOSAGE)
     Route: 048
     Dates: start: 20230717
  5. LOSARTAN [Concomitant]
     Active Substance: LOSARTAN
     Dates: start: 20230612
  6. CARVEDILOL [Concomitant]
     Active Substance: CARVEDILOL
     Dates: start: 20230612
  7. LOPERAMIDE [Concomitant]
     Active Substance: LOPERAMIDE
     Dates: start: 20230614

REACTIONS (1)
  - Diarrhoea [Recovered/Resolved]

NARRATIVE: CASE EVENT DATE: 20230710
